FAERS Safety Report 21925682 (Version 3)
Quarter: 2024Q2

REPORT INFORMATION
  Report Type: Spontaneous
  Country: US (occurrence: US)
  Receive Date: 20230130
  Receipt Date: 20240506
  Transmission Date: 20240716
  Serious: No
  Sender: FDA-Public Use
  Company Number: US-SA-SAC20230125001806

PATIENT
  Age: 53 Year
  Sex: Male
  Weight: 123.81 kg

DRUGS (5)
  1. DUPIXENT [Suspect]
     Active Substance: DUPILUMAB
     Indication: Illness
     Dosage: 300 MG, QOW
     Route: 058
     Dates: end: 202212
  2. DUPIXENT [Suspect]
     Active Substance: DUPILUMAB
     Indication: Asthma
     Dosage: 300 MG, QOW
     Route: 058
  3. OCREVUS [Concomitant]
     Active Substance: OCRELIZUMAB
  4. OCREVUS [Concomitant]
     Active Substance: OCRELIZUMAB
  5. AMLODIPINE BESYLATE [Concomitant]
     Active Substance: AMLODIPINE BESYLATE

REACTIONS (2)
  - Eczema [Unknown]
  - Condition aggravated [Not Recovered/Not Resolved]
